FAERS Safety Report 5207918-0 (Version None)
Quarter: 2007Q1

REPORT INFORMATION
  Report Type: 
  Country: None (occurrence: None)
  Receive Date: 20070115
  Receipt Date: 20070102
  Transmission Date: 20070707
  Serious: Yes (Death)
  Sender: FDA-Public Use
  Company Number: US-JNJFOC-20061007097

PATIENT
  Sex: Male

DRUGS (1)
  1. RAZADYNE [Suspect]
     Indication: DEMENTIA ALZHEIMER'S TYPE
     Route: 048

REACTIONS (3)
  - CORONARY ARTERY BYPASS [None]
  - MYOCARDIAL INFARCTION [None]
  - RENAL FAILURE [None]
